FAERS Safety Report 25477498 (Version 1)
Quarter: 2025Q2

REPORT INFORMATION
  Report Type: Spontaneous
  Country: US (occurrence: US)
  Receive Date: 20250625
  Receipt Date: 20250625
  Transmission Date: 20250716
  Serious: Yes (Death, Hospitalization, Other)
  Sender: SANDOZ
  Company Number: US-SANDOZ-SDZ2025US044129

PATIENT
  Sex: Female
  Weight: 29.55 kg

DRUGS (4)
  1. AZITHROMYCIN [Suspect]
     Active Substance: AZITHROMYCIN
     Indication: Product used for unknown indication
     Dosage: 250 MG, TIW
     Route: 065
  2. ETHAMBUTOL [Suspect]
     Active Substance: ETHAMBUTOL HYDROCHLORIDE
     Indication: Product used for unknown indication
     Route: 065
  3. LAMPRENE [Suspect]
     Active Substance: CLOFAZIMINE
     Indication: Product used for unknown indication
     Route: 065
  4. PLAQUENIL [Suspect]
     Active Substance: HYDROXYCHLOROQUINE SULFATE
     Indication: Product used for unknown indication
     Route: 065

REACTIONS (11)
  - Drug intolerance [Fatal]
  - Acute kidney injury [Unknown]
  - Dysphagia [Unknown]
  - Dyspnoea [Not Recovered/Not Resolved]
  - Asthenia [Not Recovered/Not Resolved]
  - Influenza like illness [Unknown]
  - Blood pressure increased [Unknown]
  - Fall [Unknown]
  - Cough [Recovering/Resolving]
  - Fatigue [Unknown]
  - Product dose omission issue [Unknown]
